FAERS Safety Report 5064230-0 (Version None)
Quarter: 2006Q3

REPORT INFORMATION
  Report Type: 
  Country: None (occurrence: None)
  Receive Date: 20060728
  Receipt Date: 20060725
  Transmission Date: 20061208
  Serious: Yes (Life-Threatening, Hospitalization)
  Sender: FDA-Public Use
  Company Number: PHNR2006AU00959

PATIENT
  Age: 60 Year
  Sex: Female

DRUGS (4)
  1. ACETAMINOPHEN W/ CODEINE [Concomitant]
     Indication: OSTEOARTHRITIS
     Dosage: UNK, PRN
  2. PREMIA 5 [Concomitant]
     Indication: MENOPAUSAL SYMPTOMS
     Dosage: 2.5 MG, QD
  3. IBUPROFEN [Concomitant]
     Indication: OSTEOARTHRITIS
     Dosage: 400 MG, QD
  4. LAMISIL [Suspect]
     Indication: ONYCHOMYCOSIS
     Dosage: 250 MG, QD
     Dates: start: 20051118, end: 20051220

REACTIONS (5)
  - MOUTH ULCERATION [None]
  - MYALGIA [None]
  - NEUTROPHIL COUNT DECREASED [None]
  - PYREXIA [None]
  - WHITE BLOOD CELL COUNT DECREASED [None]
